FAERS Safety Report 17635354 (Version 3)
Quarter: 2021Q2

REPORT INFORMATION
  Report Type: Spontaneous
  Country: CA (occurrence: CA)
  Receive Date: 20200406
  Receipt Date: 20210622
  Transmission Date: 20210716
  Serious: Yes (Life-Threatening, Other)
  Sender: FDA-Public Use
  Company Number: CA-SAMSUNG BIOEPIS-SB-2020-10689

PATIENT
  Age: 45 Year
  Sex: Female

DRUGS (40)
  1. ENBREL [Suspect]
     Active Substance: ETANERCEPT
     Route: 058
  2. ENBREL [Suspect]
     Active Substance: ETANERCEPT
     Route: 065
  3. ENBREL [Suspect]
     Active Substance: ETANERCEPT
     Route: 058
  4. PROGRAF [Suspect]
     Active Substance: TACROLIMUS
     Indication: TRANSPLANT
     Route: 048
  5. TACROLIMUS. [Suspect]
     Active Substance: TACROLIMUS
     Indication: TRANSPLANT
     Route: 048
  6. ENBREL [Suspect]
     Active Substance: ETANERCEPT
     Route: 048
  7. ENBREL [Suspect]
     Active Substance: ETANERCEPT
     Route: 058
  8. ENBREL [Suspect]
     Active Substance: ETANERCEPT
     Route: 058
  9. REMICADE [Suspect]
     Active Substance: INFLIXIMAB
     Dosage: UNKNOWN, POWDER FOR SOLUTION INTRAVENOUS
     Route: 042
  10. ENBREL [Suspect]
     Active Substance: ETANERCEPT
     Route: 065
  11. ENBREL [Suspect]
     Active Substance: ETANERCEPT
     Route: 058
  12. CELLCEPT [Suspect]
     Active Substance: MYCOPHENOLATE MOFETIL\MYCOPHENOLATE MOFETIL HYDROCHLORIDE
     Route: 048
  13. ENBREL [Suspect]
     Active Substance: ETANERCEPT
     Route: 065
  14. ENBREL [Suspect]
     Active Substance: ETANERCEPT
     Route: 065
  15. MYCOPHENOLATE MOFETIL. [Suspect]
     Active Substance: MYCOPHENOLATE MOFETIL
     Indication: TRANSPLANT
     Route: 048
  16. ENBREL [Suspect]
     Active Substance: ETANERCEPT
     Route: 058
  17. GLICLAZIDE [Suspect]
     Active Substance: GLICLAZIDE
     Indication: PRODUCT USED FOR UNKNOWN INDICATION
     Dosage: UNKNOWN
     Route: 042
  18. REMICADE [Suspect]
     Active Substance: INFLIXIMAB
     Dosage: UNKNOWN
     Route: 042
  19. SULFASALAZINE. [Suspect]
     Active Substance: SULFASALAZINE
     Indication: RHEUMATOID ARTHRITIS
     Route: 065
  20. INFLIXIMAB [Suspect]
     Active Substance: INFLIXIMAB
     Indication: PRODUCT USED FOR UNKNOWN INDICATION
     Dosage: UNKNOWN
     Route: 042
  21. ANTITHYMOCYTE IMMUNOGLOBULIN [Suspect]
     Active Substance: THYMOCYTE IMMUNE GLOBULIN NOS
     Indication: TRANSPLANT
     Route: 065
  22. ANTITHYMOCYTE GLOBULIN (HORSE) [Suspect]
     Active Substance: EQUINE THYMOCYTE IMMUNE GLOBULIN
     Indication: TRANSPLANT
     Dosage: UNKNOWN
     Route: 065
  23. ENBREL [Suspect]
     Active Substance: ETANERCEPT
     Indication: PRODUCT USED FOR UNKNOWN INDICATION
     Route: 058
  24. ENBREL [Suspect]
     Active Substance: ETANERCEPT
     Route: 048
  25. ENBREL [Suspect]
     Active Substance: ETANERCEPT
     Route: 048
  26. ENBREL [Suspect]
     Active Substance: ETANERCEPT
     Route: 058
  27. NEORAL [Suspect]
     Active Substance: CYCLOSPORINE
     Indication: TRANSPLANT
     Dosage: UNKNOWN
     Route: 065
  28. RAPAMUNE [Suspect]
     Active Substance: SIROLIMUS
     Indication: TRANSPLANT
     Dosage: UNKNOWN
     Route: 065
  29. TEMAZEPAM. [Suspect]
     Active Substance: TEMAZEPAM
     Indication: PRODUCT USED FOR UNKNOWN INDICATION
     Dosage: UNKNOWN
     Route: 065
  30. ANTITHYMOCYTE GLOBULIN (RABBIT) [Suspect]
     Active Substance: LAPINE T-LYMPHOCYTE IMMUNE GLOBULIN
     Indication: TRANSPLANT
     Route: 065
  31. CELLCEPT [Suspect]
     Active Substance: MYCOPHENOLATE MOFETIL\MYCOPHENOLATE MOFETIL HYDROCHLORIDE
     Indication: TRANSPLANT
     Route: 048
  32. ENBREL [Suspect]
     Active Substance: ETANERCEPT
     Route: 065
  33. ENBREL [Suspect]
     Active Substance: ETANERCEPT
     Route: 058
  34. ENBREL [Suspect]
     Active Substance: ETANERCEPT
     Route: 058
  35. REMICADE [Suspect]
     Active Substance: INFLIXIMAB
     Indication: PRODUCT USED FOR UNKNOWN INDICATION
     Dosage: UNKNOWN
     Route: 065
  36. TACROLIMUS. [Suspect]
     Active Substance: TACROLIMUS
     Route: 048
  37. DACLIZUMAB [Suspect]
     Active Substance: DACLIZUMAB
     Indication: TRANSPLANT
     Route: 042
  38. DACLIZUMAB [Suspect]
     Active Substance: DACLIZUMAB
     Indication: PRODUCT USED FOR UNKNOWN INDICATION
     Dosage: UNKNOWN
     Route: 042
  39. ENBREL [Suspect]
     Active Substance: ETANERCEPT
     Route: 065
  40. ENBREL [Suspect]
     Active Substance: ETANERCEPT
     Route: 058

REACTIONS (16)
  - Transplant rejection [Not Recovered/Not Resolved]
  - Product use issue [Not Recovered/Not Resolved]
  - Liver function test abnormal [Not Recovered/Not Resolved]
  - Incorrect route of product administration [Not Recovered/Not Resolved]
  - Loss of personal independence in daily activities [Not Recovered/Not Resolved]
  - Transplant dysfunction [Not Recovered/Not Resolved]
  - Overdose [Not Recovered/Not Resolved]
  - Condition aggravated [Not Recovered/Not Resolved]
  - Rheumatoid arthritis [Not Recovered/Not Resolved]
  - Pain [Not Recovered/Not Resolved]
  - Drug ineffective [Not Recovered/Not Resolved]
  - Sleep disorder due to general medical condition, insomnia type [Not Recovered/Not Resolved]
  - Acne [Not Recovered/Not Resolved]
  - Ovarian cyst [Not Recovered/Not Resolved]
  - Pneumonia [Not Recovered/Not Resolved]
  - Alopecia [Not Recovered/Not Resolved]
